FAERS Safety Report 7802226-3 (Version None)
Quarter: 2011Q4

REPORT INFORMATION
  Report Type: 
  Country: None (occurrence: None)
  Receive Date: 20111007
  Receipt Date: 20110927
  Transmission Date: 20120403
  Serious: Yes (Life-Threatening, Hospitalization)
  Sender: FDA-Public Use
  Company Number: US-JNJFOC-20110611373

PATIENT
  Sex: Male
  Weight: 60.5 kg

DRUGS (4)
  1. REMICADE [Suspect]
     Route: 042
     Dates: start: 20110425
  2. REMICADE [Suspect]
     Indication: CROHN'S DISEASE
     Route: 042
     Dates: start: 20100917
  3. MESALAMINE [Concomitant]
  4. PREDNISONE [Suspect]
     Indication: PRODUCT USED FOR UNKNOWN INDICATION

REACTIONS (1)
  - CROHN'S DISEASE [None]
